FAERS Safety Report 8905535 (Version 4)
Quarter: 2012Q4

REPORT INFORMATION
  Report Type: 
  Country: US (occurrence: US)
  Receive Date: 20121113
  Receipt Date: 20121217
  Transmission Date: 20130627
  Serious: Yes (Other)
  Sender: FDA-Public Use
  Company Number: US-PFIZER INC-2012283064

PATIENT
  Age: 61 Year
  Sex: Female
  Weight: 71.2 kg

DRUGS (2)
  1. ZIPRASIDONE HCL [Suspect]
     Indication: SCHIZOPHRENIA
     Dosage: 60 mg in morning and 120mg in evening
     Dates: start: 2012, end: 201211
  2. PRAVASTATIN [Concomitant]
     Indication: HIGH CHOLESTEROL
     Dosage: UNK

REACTIONS (3)
  - Hallucination [Recovered/Resolved]
  - Tachyphrenia [Recovered/Resolved]
  - Obsessive thoughts [Recovered/Resolved]
